FAERS Safety Report 12632212 (Version 2)
Quarter: 2016Q3

REPORT INFORMATION
  Report Type: Spontaneous
  Country: US (occurrence: US)
  Receive Date: 20160808
  Receipt Date: 20160808
  Transmission Date: 20161109
  Serious: No
  Sender: FDA-Public Use
  Company Number: US-BEH-2016062168

PATIENT
  Sex: Female
  Weight: 88 kg

DRUGS (25)
  1. HIZENTRA [Suspect]
     Active Substance: HUMAN IMMUNOGLOBULIN G
     Indication: IMMUNODEFICIENCY
     Route: 058
     Dates: start: 20150713
  2. PSEUDOEPHEDRINE [Concomitant]
     Active Substance: PSEUDOEPHEDRINE
  3. CITALOPRAM [Concomitant]
     Active Substance: CITALOPRAM HYDROBROMIDE
  4. ECHINACEA [Concomitant]
     Active Substance: ECHINACEA, UNSPECIFIED
  5. PRED FORTE [Concomitant]
     Active Substance: PREDNISOLONE ACETATE
  6. EPIPEN [Concomitant]
     Active Substance: EPINEPHRINE
  7. VITAMIN C [Concomitant]
     Active Substance: ASCORBIC ACID
  8. MELATONIN [Concomitant]
     Active Substance: MELATONIN
  9. ADRENERGICS, INHALANTS [Concomitant]
  10. GUAIFENESIN. [Concomitant]
     Active Substance: GUAIFENESIN
  11. LIDOCAINE/PRILOCAINE [Concomitant]
     Active Substance: LIDOCAINE\PRILOCAINE
  12. VITAMIN D [Concomitant]
     Active Substance: CHOLECALCIFEROL
  13. LMX [Concomitant]
     Active Substance: LIDOCAINE
  14. ACETAMINOPHEN. [Concomitant]
     Active Substance: ACETAMINOPHEN
  15. ROPINIROLE. [Concomitant]
     Active Substance: ROPINIROLE
  16. SIMVASTATIN. [Concomitant]
     Active Substance: SIMVASTATIN
  17. VALACICLOVIR [Concomitant]
     Active Substance: VALACYCLOVIR HYDROCHLORIDE
  18. OXYBUTYNIN [Concomitant]
     Active Substance: OXYBUTYNIN
  19. TIMOL [Concomitant]
  20. PATANASE [Concomitant]
     Active Substance: OLOPATADINE HYDROCHLORIDE
  21. NAPROXEN. [Concomitant]
     Active Substance: NAPROXEN
  22. VITAMIN B [Concomitant]
     Active Substance: VITAMIN B
  23. ZIOPTAN [Concomitant]
     Active Substance: TAFLUPROST
  24. TAMSULOSIN [Concomitant]
     Active Substance: TAMSULOSIN
  25. AMLODIPINE [Concomitant]
     Active Substance: AMLODIPINE BESYLATE

REACTIONS (1)
  - Sinusitis [Unknown]
